FAERS Safety Report 11620005 (Version 2)
Quarter: 2015Q4

REPORT INFORMATION
  Report Type: Report from Study
  Country: VE (occurrence: VE)
  Receive Date: 20151012
  Receipt Date: 20151117
  Transmission Date: 20160304
  Serious: Yes (Other)
  Sender: FDA-Public Use
  Company Number: PHHY2015VE067956

PATIENT
  Age: 52 Year
  Sex: Male

DRUGS (1)
  1. GLIVEC [Suspect]
     Active Substance: IMATINIB MESYLATE
     Indication: CHRONIC MYELOID LEUKAEMIA
     Dosage: 400 MG, QD
     Route: 048
     Dates: start: 20140726, end: 201507

REACTIONS (8)
  - Hypersensitivity [Recovering/Resolving]
  - Seborrhoeic dermatitis [Recovered/Resolved]
  - Chikungunya virus infection [Recovered/Resolved]
  - Skin lesion [Recovered/Resolved]
  - Alopecia [Recovered/Resolved]
  - Eosinophilia [Recovered/Resolved]
  - Photodermatosis [Recovered/Resolved]
  - Neoplasm skin [Recovered/Resolved]

NARRATIVE: CASE EVENT DATE: 201410
